FAERS Safety Report 6458803-8 (Version None)
Quarter: 2009Q4

REPORT INFORMATION
  Report Type: 
  Country: None (occurrence: None)
  Receive Date: 20091127
  Receipt Date: 20091123
  Transmission Date: 20100525
  Serious: Yes (Hospitalization, Disabling)
  Sender: FDA-Public Use
  Company Number: CZ-ROCHE-670568

PATIENT
  Sex: Male

DRUGS (3)
  1. CAPECITABINE [Suspect]
     Indication: COLORECTAL CANCER
     Route: 065
     Dates: start: 20090702
  2. BEVACIZUMAB [Suspect]
     Indication: COLORECTAL CANCER
     Dosage: SINGLE DOSE 560 MG
     Route: 065
     Dates: start: 20090702, end: 20091022
  3. OXALIPLATIN [Suspect]
     Indication: COLORECTAL CANCER
     Route: 065
     Dates: start: 20090702

REACTIONS (3)
  - DEHYDRATION [None]
  - DIARRHOEA [None]
  - SUBILEUS [None]
